FAERS Safety Report 11806554 (Version 2)
Quarter: 2016Q1

REPORT INFORMATION
  Report Type: Spontaneous
  Country: JP (occurrence: JP)
  Receive Date: 20151207
  Receipt Date: 20160112
  Transmission Date: 20160525
  Serious: Yes (Other)
  Sender: FDA-Public Use
  Company Number: JP-GLAXOSMITHKLINE-JP2015JPN144259

PATIENT
  Age: 32 Year
  Sex: Female
  Weight: 55 kg

DRUGS (6)
  1. LAMICTAL [Suspect]
     Active Substance: LAMOTRIGINE
     Dosage: 100 MG, BID
     Route: 048
     Dates: start: 20100603, end: 20100701
  2. FOLIAMIN [Concomitant]
     Active Substance: FOLIC ACID
     Indication: FOLATE DEFICIENCY
     Dosage: UNK
     Dates: start: 20141222, end: 20150905
  3. LAMICTAL [Suspect]
     Active Substance: LAMOTRIGINE
     Dosage: 75 MG, BID
     Route: 048
     Dates: start: 20100506, end: 20100603
  4. LAMICTAL [Suspect]
     Active Substance: LAMOTRIGINE
     Dosage: 125 MG, BID
     Route: 048
     Dates: start: 20150907
  5. LAMICTAL [Suspect]
     Active Substance: LAMOTRIGINE
     Indication: EPILEPSY
     Dosage: 25 MG, BID
     Route: 048
     Dates: start: 20100311, end: 20100408
  6. LAMICTAL [Suspect]
     Active Substance: LAMOTRIGINE
     Dosage: 50 MG, BID
     Route: 048
     Dates: start: 20100408, end: 20100506

REACTIONS (13)
  - Loss of consciousness [Unknown]
  - Headache [Unknown]
  - Simple partial seizures [Recovered/Resolved]
  - Generalised tonic-clonic seizure [Recovered/Resolved with Sequelae]
  - Disorientation [Unknown]
  - Temporal lobe epilepsy [Recovered/Resolved]
  - Somnolence [Unknown]
  - Tongue injury [Recovered/Resolved]
  - Simple partial seizures [Recovered/Resolved]
  - Exposure during pregnancy [Unknown]
  - Live birth [Unknown]
  - Epileptic aura [Unknown]
  - Drug level decreased [Unknown]

NARRATIVE: CASE EVENT DATE: 201505
